FAERS Safety Report 9502982 (Version 1)
Quarter: 2013Q1

REPORT INFORMATION
  Report Type: Spontaneous
  Country: US (occurrence: None)
  Receive Date: 20130131
  Receipt Date: 20130131
  Transmission Date: 20140127
  Serious: Yes (Hospitalization)
  Sender: FDA-Public Use
  Company Number: DSA_57530_2012

PATIENT
  Age: 70 Year
  Sex: Male

DRUGS (20)
  1. ENALAPRIL MALEATE [Suspect]
     Indication: PRODUCT USED FOR UNKNOWN INDICATION
     Dosage: (10 MG QD, DF, ORAL)
     Route: 048
     Dates: start: 20120118, end: 20120514
  2. VOLTAREN [Suspect]
     Dosage: (100 MG , QD, DF, ORAL)
     Route: 048
     Dates: start: 20110620
  3. KLOR-CON [Suspect]
     Dosage: (40 MEQ QD, DF)
     Dates: start: 20090701, end: 20120509
  4. COREG [Concomitant]
  5. GLEEVEC [Concomitant]
  6. HYGROTON [Concomitant]
  7. HYTRIN [Concomitant]
  8. IMDUR [Concomitant]
  9. LASIX [Concomitant]
  10. NEURONTIN [Concomitant]
  11. SLOW MAG [Concomitant]
  12. VICODIN [Concomitant]
  13. XANAX [Concomitant]
  14. ATENOLOL [Concomitant]
  15. BLINDED THERAPY [Concomitant]
  16. BLINDED THERAPY [Concomitant]
  17. HYDROCHLOROTHIAZIDE [Concomitant]
  18. PLACEBO (UNSPECIFIED) [Concomitant]
  19. KAYEXALATE [Concomitant]
  20. ISOSORBIDE MONONITRATE [Concomitant]

REACTIONS (3)
  - Renal failure acute [None]
  - Dizziness [None]
  - Urinary tract infection [None]
